FAERS Safety Report 5677539-4 (Version None)
Quarter: 2008Q1

REPORT INFORMATION
  Report Type: 
  Country: None (occurrence: None)
  Receive Date: 20080324
  Receipt Date: 20080316
  Transmission Date: 20080703
  Serious: Yes (Other)
  Sender: FDA-Public Use
  Company Number: CA-ELI_LILLY_AND_COMPANY-CA200803004149

PATIENT
  Age: 80 Year
  Sex: Female

DRUGS (10)
  1. FORTEO [Suspect]
     Indication: OSTEOPOROSIS
     Dosage: 20 UG, DAILY (1/D)
     Route: 058
     Dates: start: 20070411
  2. PARIET [Concomitant]
  3. SIMVASTATIN [Concomitant]
  4. ARICEPT [Concomitant]
  5. DIGOXIN [Concomitant]
  6. APO-FUROSEMIDE [Concomitant]
  7. DOMPERIDONE [Concomitant]
  8. CALTRATE [Concomitant]
  9. VITAMIN B-12 [Concomitant]
     Dosage: UNK, MONTHLY (1/M)
  10. VITAMIN D [Concomitant]

REACTIONS (4)
  - CONFUSIONAL STATE [None]
  - FALL [None]
  - PAIN [None]
  - PELVIC FRACTURE [None]
